FAERS Safety Report 11581680 (Version 1)
Quarter: 2015Q4

REPORT INFORMATION
  Report Type: Spontaneous
  Country: US (occurrence: US)
  Receive Date: 20151001
  Receipt Date: 20151001
  Transmission Date: 20160304
  Serious: No
  Sender: FDA-Public Use
  Company Number: US-ROCHE-674030

PATIENT
  Age: 61 Year
  Sex: Female

DRUGS (2)
  1. RIBASPHERE RIBAPAK [Suspect]
     Active Substance: RIBAVIRIN
     Indication: HEPATITIS C
     Route: 065
  2. PEGASYS [Suspect]
     Active Substance: PEGINTERFERON ALFA-2A
     Indication: HEPATITIS C
     Dosage: FORM: PRE-FILLED SYRINGE
     Route: 065

REACTIONS (13)
  - Red blood cell count decreased [Unknown]
  - Weight bearing difficulty [Unknown]
  - Insomnia [Unknown]
  - Alopecia [Unknown]
  - Pain [Recovered/Resolved]
  - No therapeutic response [Unknown]
  - Night sweats [Unknown]
  - Erythema [Recovered/Resolved]
  - Muscle tightness [Recovered/Resolved]
  - White blood cell count decreased [Unknown]
  - Haemoglobin [Unknown]
  - Haematocrit [Unknown]
  - Swelling [Unknown]

NARRATIVE: CASE EVENT DATE: 200911
